FAERS Safety Report 8045558-9 (Version None)
Quarter: 2012Q1

REPORT INFORMATION
  Report Type: 
  Country: None (occurrence: None)
  Receive Date: 20120113
  Receipt Date: 20111130
  Transmission Date: 20120608
  Serious: Yes (Hospitalization)
  Sender: FDA-Public Use
  Company Number: US-ROCHE-GNE316307

PATIENT
  Sex: Female
  Weight: 74.456 kg

DRUGS (14)
  1. OMALIZUMAB [Suspect]
     Indication: ASTHMA
     Route: 058
     Dates: start: 20051118, end: 20101217
  2. SUDAFED 12 HOUR [Concomitant]
     Indication: NASOPHARYNGITIS
  3. NAPROXEN (ALEVE) [Concomitant]
     Indication: HEADACHE
  4. PROVENTIL GENTLEHALER [Concomitant]
     Indication: ASTHMA
     Dosage: PRN
     Dates: start: 19820101
  5. COLACE [Concomitant]
  6. OMALIZUMAB [Suspect]
     Dosage: 300 MG, Q4W
     Dates: start: 20101119
  7. NYQUIL [Concomitant]
     Indication: NASOPHARYNGITIS
  8. CALCIUM CARBONATE [Concomitant]
     Indication: DYSPEPSIA
     Dosage: 1-2
     Route: 048
     Dates: start: 20110201
  9. EXTRA STRENGTH TYLENOL HEADACHE PLUS [Concomitant]
     Indication: HEADACHE
  10. IBUPROFEN (ADVIL) [Concomitant]
     Indication: HEADACHE
  11. PERCOCET [Concomitant]
     Indication: PROCEDURAL PAIN
  12. OMALIZUMAB [Suspect]
     Dosage: 300 MG, Q4W
     Dates: start: 20101217
  13. VITAMIN AND MINERAL PRENATAL SUPPLEMENT W/ FOLIC ACID CAP [Concomitant]
     Indication: PREGNANCY
     Dosage: 1
     Route: 048
     Dates: start: 20110201
  14. EXTRA STRENGTH TYLENOL HEADACHE PLUS [Concomitant]
     Indication: PAIN

REACTIONS (2)
  - MATERNAL EXPOSURE DURING PREGNANCY [None]
  - FAILED INDUCTION OF LABOUR [None]
